FAERS Safety Report 5568419-3 (Version None)
Quarter: 2007Q4

REPORT INFORMATION
  Report Type: 
  Country: None (occurrence: None)
  Receive Date: 20071220
  Receipt Date: 20071213
  Transmission Date: 20080405
  Serious: Yes (Death, Hospitalization, Other)
  Sender: FDA-Public Use
  Company Number: JP-AVENTIS-200713247JP

PATIENT
  Age: 45 Year
  Sex: Male
  Weight: 74 kg

DRUGS (5)
  1. TAXOTERE [Suspect]
     Route: 041
     Dates: start: 20060411, end: 20060607
  2. TAXOTERE [Suspect]
     Route: 041
     Dates: start: 20060711, end: 20061017
  3. DECADRON [Concomitant]
     Indication: POROCARCINOMA
     Route: 041
     Dates: start: 20060411, end: 20061017
  4. ZANTAC [Concomitant]
     Indication: POROCARCINOMA
     Route: 041
     Dates: start: 20060411, end: 20061017
  5. POLARAMINE [Concomitant]
     Indication: POROCARCINOMA
     Route: 041
     Dates: start: 20060411, end: 20061017

REACTIONS (2)
  - INTERSTITIAL LUNG DISEASE [None]
  - RESPIRATORY FAILURE [None]
